FAERS Safety Report 9888505 (Version 4)
Quarter: 2014Q2

REPORT INFORMATION
  Report Type: Spontaneous
  Country: US (occurrence: US)
  Receive Date: 20140211
  Receipt Date: 20140530
  Transmission Date: 20141212
  Serious: Yes (Hospitalization, Other)
  Sender: FDA-Public Use
  Company Number: US-BAYER-2014-021087

PATIENT
  Age: 31 Year
  Sex: Female
  Weight: 70.3 kg

DRUGS (17)
  1. MIRENA [Suspect]
     Indication: CONTRACEPTION
     Dosage: 20 MCG/24HR, CONT
     Route: 015
     Dates: start: 20080617, end: 20101228
  2. NIACIN [Concomitant]
  3. VALIUM [Concomitant]
  4. LOESTRIN [Concomitant]
  5. LORTAB [Concomitant]
  6. POTASSIUM [Concomitant]
  7. FISH OIL [Concomitant]
  8. SPRINTEC [Concomitant]
     Dosage: UNK
     Dates: start: 2003
  9. LEVAQUIN [Concomitant]
     Dosage: UNK
     Dates: start: 2003
  10. DEPO-PROVERA [Concomitant]
     Dosage: UNK
     Dates: start: 2003
  11. TYLENOL [PARACETAMOL] [Concomitant]
     Dosage: UNK
     Dates: start: 2003
  12. LEXAPRO [Concomitant]
     Dosage: UNK
     Dates: start: 2003
  13. AMOXIL [Concomitant]
     Dosage: UNK
     Dates: start: 2003
  14. ORTHO TRI-CYCLEN LO [Concomitant]
     Dosage: UNK
     Dates: start: 2003
  15. MAGNESIUM [MAGNESIUM] [Concomitant]
     Dosage: UNK
     Dates: start: 2003
  16. MULTIVITAMINS [Concomitant]
     Dosage: UNK
     Dates: start: 2003
  17. MUCINEX [Concomitant]
     Dosage: UNK
     Dates: start: 2003

REACTIONS (7)
  - Uterine perforation [None]
  - Injury [None]
  - Post procedural haemorrhage [None]
  - Procedural pain [None]
  - Emotional distress [None]
  - Depression [None]
  - Anxiety [None]
